FAERS Safety Report 23172637 (Version 1)
Quarter: 2023Q4

REPORT INFORMATION
  Report Type: Spontaneous
  Country: FR (occurrence: None)
  Receive Date: 20231110
  Receipt Date: 20231110
  Transmission Date: 20240109
  Serious: Yes (Hospitalization)
  Sender: FDA-Public Use
  Company Number: 2023A255368

PATIENT
  Age: 45 Year
  Sex: Female
  Weight: 73 kg

DRUGS (5)
  1. QUETIAPINE [Suspect]
     Active Substance: QUETIAPINE
     Dates: start: 201904
  2. PREDNISONE [Suspect]
     Active Substance: PREDNISONE
  3. PLAQUENIL [Suspect]
     Active Substance: HYDROXYCHLOROQUINE SULFATE
  4. FLUOXETINE [Suspect]
     Active Substance: FLUOXETINE HYDROCHLORIDE
     Dates: start: 201904, end: 202007
  5. CARBAMAZEPINE [Suspect]
     Active Substance: CARBAMAZEPINE
     Dates: start: 201904, end: 202007

REACTIONS (1)
  - Bipolar disorder [Not Recovered/Not Resolved]

NARRATIVE: CASE EVENT DATE: 20230705
